FAERS Safety Report 22245483 (Version 4)
Quarter: 2023Q2

REPORT INFORMATION
  Report Type: Report from Study
  Country: US (occurrence: US)
  Receive Date: 20230424
  Receipt Date: 20230606
  Transmission Date: 20230721
  Serious: Yes (Other)
  Sender: FDA-Public Use
  Company Number: US-002147023-NVSC2023US088747

PATIENT
  Sex: Female

DRUGS (2)
  1. KISQALI [Suspect]
     Active Substance: RIBOCICLIB
     Indication: Breast cancer stage IV
     Dosage: UNK
     Route: 048
     Dates: start: 202203, end: 202206
  2. KISQALI [Suspect]
     Active Substance: RIBOCICLIB
     Indication: B-cell lymphoma stage IV

REACTIONS (3)
  - Breast cancer stage IV [Unknown]
  - B-cell lymphoma stage IV [Unknown]
  - Malignant neoplasm progression [Unknown]
